FAERS Safety Report 7298287-3 (Version None)
Quarter: 2011Q1

REPORT INFORMATION
  Report Type: 
  Country: None (occurrence: None)
  Receive Date: 20110217
  Receipt Date: 20100416
  Transmission Date: 20110831
  Serious: No
  Sender: FDA-Public Use
  Company Number: US-PFIZER INC-2010048811

PATIENT
  Sex: Female
  Weight: 65.76 kg

DRUGS (4)
  1. LUMIGAN [Suspect]
     Indication: OPEN ANGLE GLAUCOMA
     Dosage: UNK
     Route: 047
     Dates: start: 20100219, end: 20100317
  2. XALATAN [Suspect]
     Indication: OPEN ANGLE GLAUCOMA
     Dosage: UNK
     Route: 047
     Dates: start: 20100319
  3. SYNTHROID [Concomitant]
     Indication: HYPERTHYROIDISM
     Dosage: 0.088 MG, 1X/DAY
     Route: 048
  4. CRESTOR [Concomitant]
     Indication: BLOOD CHOLESTEROL INCREASED
     Dosage: 2.5 MG, 1X/DAY
     Route: 048

REACTIONS (2)
  - URINARY TRACT INFECTION [None]
  - COUGH [None]
